FAERS Safety Report 18062530 (Version 3)
Quarter: 2023Q4

REPORT INFORMATION
  Report Type: Spontaneous
  Country: ES (occurrence: ES)
  Receive Date: 20200724
  Receipt Date: 20231227
  Transmission Date: 20240110
  Serious: Yes (Hospitalization, Other)
  Sender: FDA-Public Use
  Company Number: ES-AEMPS-656714

PATIENT
  Age: 11 Year
  Sex: Female
  Weight: 57 kg

DRUGS (4)
  1. METRONIDAZOLE [Suspect]
     Active Substance: METRONIDAZOLE
     Indication: Cellulitis orbital
     Dosage: 430 MILLIGRAM, FOUR TIMES/DAY
     Route: 042
     Dates: start: 20200208, end: 20200214
  2. METRONIDAZOLE [Suspect]
     Active Substance: METRONIDAZOLE
     Indication: Sinusitis
     Dosage: 500 MILLIGRAM, TWO TIMES A DAY
     Route: 042
     Dates: start: 20200208, end: 20200214
  3. MEROPENEM [Suspect]
     Active Substance: MEROPENEM
     Indication: Cellulitis orbital
     Dosage: 2 GRAM, 3 TIMES A DAY
     Route: 042
     Dates: start: 20200214, end: 20200224
  4. MEROPENEM [Suspect]
     Active Substance: MEROPENEM
     Indication: Sinusitis
     Dosage: 1 GRAM, 3 TIMES A DAY
     Route: 042
     Dates: start: 20200214, end: 20200224

REACTIONS (1)
  - Drug reaction with eosinophilia and systemic symptoms [Recovered/Resolved]

NARRATIVE: CASE EVENT DATE: 20200222
